FAERS Safety Report 23262222 (Version 1)
Quarter: 2023Q4

REPORT INFORMATION
  Report Type: Report from Study
  Country: ZA (occurrence: ZA)
  Receive Date: 20231205
  Receipt Date: 20231205
  Transmission Date: 20240109
  Serious: Yes (Hospitalization)
  Sender: FDA-Public Use
  Company Number: ZA-BAYER-2023A171222

PATIENT
  Sex: Female

DRUGS (1)
  1. EYLEA [Suspect]
     Active Substance: AFLIBERCEPT
     Indication: Neovascular age-related macular degeneration
     Dosage: 1 X VIAL FOR THE RIGHT EYE ONLY, SOLUTION FOR INJECTION, 40 MG/ML
     Dates: start: 20230314

REACTIONS (2)
  - Hospitalisation [Unknown]
  - Product dose omission issue [Unknown]
